FAERS Safety Report 15401340 (Version 4)
Quarter: 2019Q1

REPORT INFORMATION
  Report Type: Spontaneous
  Country: US (occurrence: US)
  Receive Date: 20180919
  Receipt Date: 20190312
  Transmission Date: 20190417
  Serious: No
  Sender: FDA-Public Use
  Company Number: US-SA-2018SA260329

PATIENT
  Age: 64 Year
  Sex: Female

DRUGS (8)
  1. ALIROCUMAB PREFILLED PEN [Suspect]
     Active Substance: ALIROCUMAB
     Dosage: 150 MG, Q3W
     Route: 058
  2. ALIROCUMAB PREFILLED PEN [Suspect]
     Active Substance: ALIROCUMAB
     Dosage: 150 EVERY 2.5 WEEKS
     Route: 058
  3. ALIROCUMAB PREFILLED PEN [Suspect]
     Active Substance: ALIROCUMAB
     Indication: BLOOD CHOLESTEROL INCREASED
     Dosage: 150 MG, QOW
     Route: 058
     Dates: start: 20170203
  4. ALIROCUMAB PREFILLED PEN [Suspect]
     Active Substance: ALIROCUMAB
     Dosage: 150 EVERY 2.5 WEEKS
     Route: 058
  5. PRALUENT [Suspect]
     Active Substance: ALIROCUMAB
     Indication: BLOOD CHOLESTEROL INCREASED
     Dosage: 150 MG, QOW
     Route: 058
     Dates: start: 20170203
  6. PRALUENT [Suspect]
     Active Substance: ALIROCUMAB
     Dosage: 150 EVERY 2.5 WEEKS
     Route: 058
  7. PRALUENT [Suspect]
     Active Substance: ALIROCUMAB
     Dosage: 150 MG, Q4W
     Route: 058
  8. PRALUENT [Suspect]
     Active Substance: ALIROCUMAB
     Dosage: 150 MG, Q3W
     Route: 058

REACTIONS (7)
  - Injection site urticaria [Recovered/Resolved]
  - Injection site scar [Recovered/Resolved]
  - Device issue [Unknown]
  - Product dose omission [Unknown]
  - Off label use [Unknown]
  - Blood cholesterol increased [Unknown]
  - Device use issue [Unknown]

NARRATIVE: CASE EVENT DATE: 20180912
